FAERS Safety Report 16115197 (Version 3)
Quarter: 2022Q1

REPORT INFORMATION
  Report Type: Report from Study
  Country: US (occurrence: US)
  Receive Date: 20190325
  Receipt Date: 20220314
  Transmission Date: 20220423
  Serious: Yes (Other)
  Sender: FDA-Public Use
  Company Number: US-TEVA-2019-US-1027067

PATIENT
  Sex: Female

DRUGS (13)
  1. CISPLATIN [Suspect]
     Active Substance: CISPLATIN
     Indication: Ovarian cancer
     Dosage: 100 MG/M2, CYCLIC
     Route: 033
  2. CISPLATIN [Suspect]
     Active Substance: CISPLATIN
     Dosage: 75 MG/M2, CYCLIC (DAY 1, TO GRAVITY IN 1 L 0.9% SALINE FLUSHED WITH 500 ML 0.9% SALINE AND ADMINIS )
     Route: 033
  3. PACLITAXEL [Suspect]
     Active Substance: PACLITAXEL
     Indication: Ovarian cancer
     Dosage: 60 MG/M2, CYCLIC (DAY 8, TO GRAVITY IN 1 L 0.9% SALINE FLUSHED WITH 500 ML 0.9% SALINE AND ADMINIST)
     Route: 033
  4. DOCETAXEL [Suspect]
     Active Substance: DOCETAXEL
     Indication: Ovarian cancer
     Dosage: 75 MG/M2, CYCLIC (DAY 1: ADMINISTERED OVER 1 H 21-DAY CYCLE WITH THERAPY ON D1 AND D8 FOR A TOTAL O)
     Route: 041
  5. DEXAMETHASONE [Concomitant]
     Active Substance: DEXAMETHASONE
     Indication: Chemotherapy
     Dosage: 8 MG, CYCLIC (ON DAY 0 AND DAY 2-5)
     Route: 048
  6. DEXAMETHASONE [Concomitant]
     Active Substance: DEXAMETHASONE
     Dosage: 10 MG, CYCLIC (PRE-CHEMOTHERAPY ON DAY 1)
     Route: 042
  7. SODIUM CHLORIDE [Concomitant]
     Active Substance: SODIUM CHLORIDE
     Dosage: 1 L, CYCLIC (DAY 1: PRE-HYDRATION)
     Route: 042
  8. SODIUM CHLORIDE [Concomitant]
     Active Substance: SODIUM CHLORIDE
     Dosage: UNK, CYCLIC (ON DAY 1 AND DAY 8: TO GRAVITY IN 1 L 0.9% SALINE FLUSHED WITH 500 ML 0.9% SALINE AND )
     Route: 042
  9. DIPHENHYDRAMINE [Concomitant]
     Active Substance: DIPHENHYDRAMINE
     Indication: Chemotherapy
     Dosage: 50 MG, CYCLIC (PRE-CHEMOTHERAPY ON DAY 1 AND DAY 8)
     Route: 042
  10. FOSAPREPITANT [Concomitant]
     Active Substance: FOSAPREPITANT
     Indication: Chemotherapy
     Dosage: 150 MG, CYCLIC (ON DAY 1 AND DAY 8, PRECHEMOTHERAPY)
     Route: 042
  11. PALONOSETRON [Concomitant]
     Active Substance: PALONOSETRON
     Dosage: 0.25 MG, CYCLIC (ON DAY 1 AND DAY 8)
     Route: 042
  12. RANITIDINE [Concomitant]
     Active Substance: RANITIDINE
     Dosage: 50 MG, CYCLIC (ON DAY 1 AND DAY 8)
     Route: 042
  13. PEGFILGRASTIM [Concomitant]
     Active Substance: PEGFILGRASTIM
     Dosage: 6 MG, CYCLIC (ON DAY 8)
     Route: 058

REACTIONS (1)
  - Infusion site infection [Unknown]
